FAERS Safety Report 21779119 (Version 1)
Quarter: 2022Q4

REPORT INFORMATION
  Report Type: Spontaneous
  Country: AU (occurrence: AU)
  Receive Date: 20221226
  Receipt Date: 20221226
  Transmission Date: 20230113
  Serious: Yes (Other)
  Sender: FDA-Public Use
  Company Number: AU-ORGANON-O2212AUS000368

PATIENT
  Age: 63 Year
  Sex: Male

DRUGS (1)
  1. BETAMETHASONE VALERATE [Suspect]
     Active Substance: BETAMETHASONE VALERATE
     Indication: Dyshidrotic eczema
     Dosage: UNK

REACTIONS (1)
  - Skin reaction [Recovering/Resolving]
